FAERS Safety Report 6257236-7 (Version None)
Quarter: 2009Q3

REPORT INFORMATION
  Report Type: 
  Country: None (occurrence: None)
  Receive Date: 20090706
  Receipt Date: 20090618
  Transmission Date: 20100115
  Serious: Yes (Death)
  Sender: FDA-Public Use
  Company Number: MX-PFIZER INC-2009229938

PATIENT
  Age: 88 Year

DRUGS (1)
  1. GENOTROPIN [Suspect]
     Dosage: 0.7 MG, UNK
     Route: 058
     Dates: start: 20080502

REACTIONS (1)
  - DEATH [None]
